FAERS Safety Report 7934823-9 (Version None)
Quarter: 2011Q4

REPORT INFORMATION
  Report Type: 
  Country: None (occurrence: None)
  Receive Date: 20111122
  Receipt Date: 20111005
  Transmission Date: 20120403
  Serious: No
  Sender: FDA-Public Use
  Company Number: US-PFIZER INC-K201101181

PATIENT
  Sex: Male
  Weight: 87.075 kg

DRUGS (3)
  1. EMBEDA [Suspect]
     Indication: SPINAL OPERATION
  2. EMBEDA [Suspect]
     Indication: PAIN
     Dosage: 100 MG, 3X/DAY
     Route: 048
     Dates: start: 20100101, end: 20110301
  3. XANAX [Concomitant]
     Dosage: UNK

REACTIONS (4)
  - CRYING [None]
  - BONE PAIN [None]
  - FEELING ABNORMAL [None]
  - PAIN [None]
